FAERS Safety Report 8289575-2 (Version None)
Quarter: 2012Q2

REPORT INFORMATION
  Report Type: 
  Country: None (occurrence: None)
  Receive Date: 20120417
  Receipt Date: 20120412
  Transmission Date: 20120825
  Serious: Yes (Other)
  Sender: FDA-Public Use
  Company Number: PHEH2012US007931

PATIENT
  Age: 43 Year
  Sex: Female

DRUGS (1)
  1. GILENYA [Suspect]

REACTIONS (3)
  - CHOLELITHIASIS [None]
  - IMMUNODEFICIENCY [None]
  - BLOOD BILIRUBIN INCREASED [None]
